FAERS Safety Report 4330197-3 (Version None)
Quarter: 2004Q2

REPORT INFORMATION
  Report Type: 
  Country: None (occurrence: None)
  Receive Date: 20040401
  Receipt Date: 20040305
  Transmission Date: 20050107
  Serious: Yes (Other)
  Sender: FDA-Public Use
  Company Number: 2004007196

PATIENT
  Age: 20 Year
  Sex: Male
  Weight: 77.1115 kg

DRUGS (1)
  1. VISINE MOISTURIZING (POLYETHYLENE GLYCOL, TETRAHYDROZOLINE HYDROCHLORI [Suspect]
     Indication: CORRECTIVE LENS USER
     Dosage: OHPTHALMIC
     Route: 047
     Dates: start: 20031223, end: 20031224

REACTIONS (5)
  - ABNORMAL SENSATION IN EYE [None]
  - EYE IRRITATION [None]
  - EYE REDNESS [None]
  - MEDICATION ERROR [None]
  - SUPERFICIAL INJURY OF EYE [None]
